FAERS Safety Report 18536481 (Version 2)
Quarter: 2020Q4

REPORT INFORMATION
  Report Type: Report from Study
  Country: US (occurrence: US)
  Receive Date: 20201123
  Receipt Date: 20201130
  Transmission Date: 20210114
  Serious: Yes (Death, Hospitalization, Other)
  Sender: FDA-Public Use
  Company Number: US-GILEAD-2020-0504421

PATIENT
  Age: 15 Year
  Sex: Male
  Weight: 38 kg

DRUGS (3)
  1. AMBRISENTAN [Suspect]
     Active Substance: AMBRISENTAN
     Indication: PULMONARY ARTERIAL HYPERTENSION
  2. AMBRISENTAN [Suspect]
     Active Substance: AMBRISENTAN
     Indication: COR PULMONALE
     Dosage: 10 MG, QD
     Route: 048
     Dates: start: 20190528, end: 20201114
  3. TADALAFIL. [Concomitant]
     Active Substance: TADALAFIL
     Dosage: 40 MG
     Route: 048
     Dates: end: 202011

REACTIONS (4)
  - Septic shock [Not Recovered/Not Resolved]
  - Cardiopulmonary failure [Fatal]
  - Staphylococcal bacteraemia [Not Recovered/Not Resolved]
  - Multiple organ dysfunction syndrome [Fatal]

NARRATIVE: CASE EVENT DATE: 20201007
